FAERS Safety Report 6753954-2 (Version None)
Quarter: 2010Q2

REPORT INFORMATION
  Report Type: 
  Country: None (occurrence: None)
  Receive Date: 20100603
  Receipt Date: 20100527
  Transmission Date: 20101027
  Serious: Yes (Other)
  Sender: FDA-Public Use
  Company Number: A0861687A

PATIENT
  Age: 76 Year
  Sex: Female

DRUGS (9)
  1. ADVAIR DISKUS 100/50 [Suspect]
     Indication: ASTHMA
     Dosage: 1PUFF TWICE PER DAY
     Route: 055
     Dates: start: 20090801
  2. GLIMEPIRIDE [Concomitant]
  3. DIOVAN HCT [Concomitant]
  4. ATENOLOL [Concomitant]
  5. CENTRUM SILVER [Concomitant]
  6. INSULIN [Concomitant]
  7. VITAMIN C [Concomitant]
  8. LOVAZA [Concomitant]
  9. NITROGLYCERIN [Concomitant]

REACTIONS (5)
  - ANGINA PECTORIS [None]
  - COUGH [None]
  - DYSPNOEA [None]
  - PHOTOSENSITIVITY REACTION [None]
  - SNEEZING [None]
